FAERS Safety Report 7981764-7 (Version None)
Quarter: 2011Q4

REPORT INFORMATION
  Report Type: 
  Country: None (occurrence: None)
  Receive Date: 20111215
  Receipt Date: 20111212
  Transmission Date: 20120403
  Serious: Yes (Death)
  Sender: FDA-Public Use
  Company Number: US-BAYER-2011-049639

PATIENT
  Age: 63 Year
  Sex: Male
  Weight: 97.959 kg

DRUGS (27)
  1. SORAFENIB (RAF KINASE INHIBITOR) [Suspect]
     Dosage: 400 MG, BID
     Dates: start: 20100701, end: 20100729
  2. SORAFENIB (RAF KINASE INHIBITOR) [Suspect]
     Dosage: 400 MG, QD
     Dates: start: 20110207, end: 20110207
  3. SORAFENIB (RAF KINASE INHIBITOR) [Suspect]
     Dosage: 400 MG, BID
     Dates: start: 20110505, end: 20110602
  4. SORAFENIB (RAF KINASE INHIBITOR) [Suspect]
     Indication: THYROID CANCER
     Dosage: 400 MG, BID
     Dates: start: 20100408, end: 20100506
  5. SORAFENIB (RAF KINASE INHIBITOR) [Suspect]
     Dosage: 400 MG, BID
     Dates: start: 20110407, end: 20110505
  6. IBUPROFEN [Concomitant]
     Dosage: 1800 MG
     Route: 048
     Dates: start: 20100923, end: 20110608
  7. NEXIUM [Concomitant]
     Indication: DYSPEPSIA
     Dosage: 40 MG
     Route: 048
     Dates: start: 20100902, end: 20110608
  8. AMLODIPINE [Concomitant]
     Indication: HYPERTENSION
     Dosage: UNK
     Dates: start: 20100520
  9. SORAFENIB (RAF KINASE INHIBITOR) [Suspect]
     Dosage: 400 MG, BID
     Dates: start: 20100603, end: 20100701
  10. SORAFENIB (RAF KINASE INHIBITOR) [Suspect]
     Dosage: 400 MG, BID
     Dates: start: 20100923, end: 20101022
  11. IBUPROFEN [Concomitant]
     Indication: PALMAR-PLANTAR ERYTHRODYSAESTHESIA SYNDROME
     Dosage: 1800 MG
     Route: 048
     Dates: start: 20100506, end: 20100902
  12. SORAFENIB (RAF KINASE INHIBITOR) [Suspect]
     Dosage: 400 MG, BID
     Dates: start: 20101216, end: 20110120
  13. SORAFENIB (RAF KINASE INHIBITOR) [Suspect]
     Dosage: 400 MG, BID
     Dates: start: 20110120, end: 20110206
  14. MEN'S MULTI [Concomitant]
     Indication: VITAMIN SUPPLEMENTATION
     Dosage: 1 DF, UNK
     Route: 048
     Dates: start: 20090101, end: 20110608
  15. LOPERAMIDE HCL [Concomitant]
     Indication: DIARRHOEA
     Dosage: 4 MG
     Route: 048
     Dates: start: 20100408, end: 20100729
  16. SORAFENIB (RAF KINASE INHIBITOR) [Suspect]
     Dosage: 400 MG, BID
     Dates: start: 20100506, end: 20100603
  17. SORAFENIB (RAF KINASE INHIBITOR) [Suspect]
     Dosage: 400 MG, BID
     Dates: start: 20100826, end: 20100923
  18. SORAFENIB (RAF KINASE INHIBITOR) [Suspect]
     Dosage: 400 MG, BID
     Dates: start: 20101118, end: 20101215
  19. SORAFENIB (RAF KINASE INHIBITOR) [Suspect]
     Dosage: 400 MG, BID
     Dates: start: 20110208, end: 20110216
  20. SORAFENIB (RAF KINASE INHIBITOR) [Suspect]
     Dosage: 400 MG, BID
     Route: 048
     Dates: start: 20110603, end: 20110607
  21. SORAFENIB (RAF KINASE INHIBITOR) [Suspect]
     Dosage: 400 MG, BID
     Dates: start: 20110217, end: 20110310
  22. SORAFENIB (RAF KINASE INHIBITOR) [Suspect]
     Dosage: 400 MG, BID
     Dates: start: 20110310, end: 20110406
  23. SYNTHROID [Concomitant]
     Indication: HYPOTHYROIDISM
     Dosage: DAILY DOSE 225 ?G
     Route: 048
     Dates: start: 20031201, end: 20110608
  24. TPN [Concomitant]
     Indication: SUPPLEMENTATION THERAPY
     Dosage: 1800 MG
     Route: 048
     Dates: start: 20100923, end: 20110608
  25. SORAFENIB (RAF KINASE INHIBITOR) [Suspect]
     Dosage: 400 MG, BID
     Dates: start: 20100729, end: 20100826
  26. SORAFENIB (RAF KINASE INHIBITOR) [Suspect]
     Dosage: 400 MG, BID
     Dates: start: 20101022, end: 20101118
  27. ZANTAC [Concomitant]
     Indication: DYSPEPSIA
     Dosage: DAILY DOSE 150 ?G
     Route: 048
     Dates: start: 19900101, end: 20110608

REACTIONS (2)
  - MYOCARDIAL INFARCTION [None]
  - HYPERTENSION [None]
